FAERS Safety Report 7663510-X (Version None)
Quarter: 2011Q3

REPORT INFORMATION
  Report Type: 
  Country: None (occurrence: None)
  Receive Date: 20110805
  Receipt Date: 20100913
  Transmission Date: 20111222
  Serious: No
  Sender: FDA-Public Use
  Company Number: US-ABBOTT-10P-163-0671177-00

PATIENT
  Sex: Male

DRUGS (3)
  1. BENICAR [Concomitant]
     Indication: PRODUCT USED FOR UNKNOWN INDICATION
  2. NIASPAN [Suspect]
     Indication: BLOOD CHOLESTEROL INCREASED
     Dates: start: 20090101, end: 20100201
  3. NIASPAN [Suspect]
     Indication: BLOOD TRIGLYCERIDES INCREASED

REACTIONS (3)
  - BLOOD TRIGLYCERIDES ABNORMAL [None]
  - FLUSHING [None]
  - BLOOD CHOLESTEROL ABNORMAL [None]
